FAERS Safety Report 13015237 (Version 1)
Quarter: 2016Q4

REPORT INFORMATION
  Report Type: Spontaneous
  Country: CZ (occurrence: CZ)
  Receive Date: 20161211
  Receipt Date: 20161211
  Transmission Date: 20170207
  Serious: Yes (Hospitalization, Other)
  Sender: FDA-Public Use
  Company Number: CZ-BRISTOL-MYERS SQUIBB COMPANY-BMS-2016-105927

PATIENT
  Age: 30 Year
  Sex: Female

DRUGS (1)
  1. WARFARIN SODIUM. [Suspect]
     Active Substance: WARFARIN SODIUM
     Indication: THROMBOSIS PROPHYLAXIS
     Route: 065

REACTIONS (7)
  - Atrioventricular block complete [Unknown]
  - Mitral valve replacement [Unknown]
  - Cardiac pacemaker insertion [Unknown]
  - Cardiac failure [Unknown]
  - Maternal exposure during pregnancy [Recovered/Resolved]
  - Thrombosis [Unknown]
  - Abortion induced [Unknown]
